FAERS Safety Report 4447115-X (Version None)
Quarter: 2004Q3

REPORT INFORMATION
  Report Type: 
  Country: None (occurrence: None)
  Receive Date: 20040813
  Receipt Date: 20040503
  Transmission Date: 20050211
  Serious: No
  Sender: FDA-Public Use
  Company Number: S04-USA-02953-01

PATIENT
  Sex: Male

DRUGS (7)
  1. NAMENDA [Suspect]
     Indication: DEMENTIA ALZHEIMER'S TYPE
     Dosage: 10 MG BID; PO
     Route: 048
     Dates: start: 20040101
  2. NAMENDA [Suspect]
     Indication: DEMENTIA ALZHEIMER'S TYPE
     Dosage: 5 MG QD; PO
     Route: 048
     Dates: start: 20040301, end: 20040101
  3. NAMENDA [Suspect]
     Indication: DEMENTIA ALZHEIMER'S TYPE
     Dosage: 10 MG QD; PO
     Route: 048
     Dates: start: 20040101, end: 20040101
  4. NAMENDA [Suspect]
     Indication: DEMENTIA ALZHEIMER'S TYPE
     Dosage: 15 MG QD; PO
     Route: 048
     Dates: start: 20040101, end: 20040101
  5. REQUIP [Suspect]
     Indication: PARKINSON'S DISEASE
  6. REQUIP [Suspect]
     Indication: PARKINSON'S DISEASE
     Dosage: UNITS
  7. ARICEPT [Concomitant]

REACTIONS (2)
  - AGITATION [None]
  - PANIC ATTACK [None]
